FAERS Safety Report 8620842-6 (Version None)
Quarter: 2012Q3

REPORT INFORMATION
  Report Type: 
  Country: None (occurrence: None)
  Receive Date: 20120824
  Receipt Date: 20120821
  Transmission Date: 20120928
  Serious: Yes (Hospitalization)
  Sender: FDA-Public Use
  Company Number: PHHO2012BR012171

PATIENT
  Sex: Male
  Weight: 62.8 kg

DRUGS (7)
  1. FUROSEMIDE [Concomitant]
     Indication: HEART RATE IRREGULAR
     Dosage: 40 MG, QD
     Route: 048
     Dates: start: 20070101
  2. ISOSORBIDE DINITRATE [Concomitant]
     Indication: HEART RATE IRREGULAR
     Dosage: 20 MG, BID
     Route: 048
     Dates: start: 20070101
  3. SOTALOL HYDROCHLORIDE [Concomitant]
     Indication: HEART RATE IRREGULAR
     Dosage: 160 MG, QD
     Route: 048
     Dates: start: 20120601
  4. LOPERAMIDE [Suspect]
     Indication: DIARRHOEA
     Dosage: 2 MG, QD
     Route: 048
     Dates: start: 20120626, end: 20120812
  5. INC424 [Suspect]
     Indication: MYELOFIBROSIS
     Dosage: 15 MG, BID
     Route: 048
     Dates: start: 20120625
  6. SPIRONOLACTONE [Concomitant]
     Indication: HEART RATE IRREGULAR
     Dosage: 25 MG, QD
     Route: 048
     Dates: start: 20070101
  7. LOSARTAN POTASSIUM [Concomitant]
     Indication: HEART RATE IRREGULAR
     Dosage: 75 MG, QD
     Route: 048
     Dates: start: 20070101

REACTIONS (1)
  - MUSCLE SPASMS [None]
